FAERS Safety Report 5927597-4 (Version None)
Quarter: 2008Q4

REPORT INFORMATION
  Report Type: 
  Country: None (occurrence: None)
  Receive Date: 20081020
  Receipt Date: 20081003
  Transmission Date: 20090506
  Serious: Yes (Hospitalization)
  Sender: FDA-Public Use
  Company Number: 2008BI022021

PATIENT
  Age: 53 Year
  Sex: Female

DRUGS (11)
  1. TYSABRI [Suspect]
     Indication: MULTIPLE SCLEROSIS
     Dosage: 300 MG;QM;IV
     Route: 042
     Dates: start: 20061107
  2. PAROXETINE HCL [Concomitant]
  3. ARTISTA [Concomitant]
  4. SIMVASTATIN [Concomitant]
  5. NAMENDA [Concomitant]
  6. ARICEPT [Concomitant]
  7. CALCIUM [Concomitant]
  8. VITAMINS [Concomitant]
  9. NAPROSYN [Concomitant]
  10. EVISTA [Concomitant]
  11. AVONEX [Concomitant]

REACTIONS (32)
  - ANXIETY [None]
  - APHASIA [None]
  - BLADDER DISORDER [None]
  - BLOOD GLUCOSE DECREASED [None]
  - COGNITIVE DISORDER [None]
  - CONDITION AGGRAVATED [None]
  - DEPRESSION [None]
  - DRUG ABUSE [None]
  - DYSARTHRIA [None]
  - EYELID PTOSIS [None]
  - FACIAL PALSY [None]
  - FALL [None]
  - FAMILY STRESS [None]
  - GAIT DISTURBANCE [None]
  - GENERAL PHYSICAL HEALTH DETERIORATION [None]
  - HYPERTONIA [None]
  - HYPOAESTHESIA [None]
  - HYPOKINESIA [None]
  - LABORATORY TEST INTERFERENCE [None]
  - MENTAL DISORDER [None]
  - MUSCLE SPASTICITY [None]
  - MUSCLE TWITCHING [None]
  - MUSCULAR WEAKNESS [None]
  - MYALGIA [None]
  - NEUROLOGICAL SYMPTOM [None]
  - OVERDOSE [None]
  - PARAESTHESIA [None]
  - PROGRESSIVE MULTIFOCAL LEUKOENCEPHALOPATHY [None]
  - URINARY TRACT INFECTION [None]
  - VISION BLURRED [None]
  - VISUAL ACUITY REDUCED [None]
  - WHEELCHAIR USER [None]
